FAERS Safety Report 6712914-8 (Version None)
Quarter: 2010Q2

REPORT INFORMATION
  Report Type: 
  Country: None (occurrence: None)
  Receive Date: 20100506
  Receipt Date: 20100429
  Transmission Date: 20101027
  Serious: Yes (Congenital Anomaly)
  Sender: FDA-Public Use
  Company Number: US-BRISTOL-MYERS SQUIBB COMPANY-15024854

PATIENT
  Age: 5 Year

DRUGS (4)
  1. SUSTIVA [Suspect]
     Indication: ANTIRETROVIRAL THERAPY
     Route: 064
  2. NEVIRAPINE [Suspect]
     Indication: ANTIRETROVIRAL THERAPY
     Route: 064
  3. ABACAVIR [Suspect]
     Indication: ANTIRETROVIRAL THERAPY
     Route: 064
  4. LAMIVUDINE [Suspect]
     Indication: ANTIRETROVIRAL THERAPY
     Route: 064

REACTIONS (1)
  - TALIPES [None]
